FAERS Safety Report 18777426 (Version 1)
Quarter: 2021Q1

REPORT INFORMATION
  Report Type: Report from Study
  Country: US (occurrence: US)
  Receive Date: 20210123
  Receipt Date: 20210123
  Transmission Date: 20210419
  Serious: Yes (Hospitalization, Other)
  Sender: FDA-Public Use
  Company Number: US-SHIRE-US201923913

PATIENT
  Age: 67 Year
  Sex: Female

DRUGS (8)
  1. TEDUGLUTIDE [Suspect]
     Active Substance: TEDUGLUTIDE
     Indication: SHORT-BOWEL SYNDROME
     Dosage: 3.52 MILLIGRAM, QD
     Route: 058
     Dates: start: 20170720
  2. TEDUGLUTIDE [Suspect]
     Active Substance: TEDUGLUTIDE
     Dosage: 5 MILLIGRAM, QD
     Route: 058
     Dates: start: 20170720
  3. TEDUGLUTIDE [Suspect]
     Active Substance: TEDUGLUTIDE
     Dosage: 5 MILLIGRAM, QD
     Route: 058
     Dates: start: 20170720
  4. TEDUGLUTIDE [Suspect]
     Active Substance: TEDUGLUTIDE
     Indication: SHORT-BOWEL SYNDROME
     Dosage: 3.52 MILLIGRAM, QD
     Route: 058
     Dates: start: 20170720
  5. TEDUGLUTIDE [Suspect]
     Active Substance: TEDUGLUTIDE
     Indication: SHORT-BOWEL SYNDROME
     Dosage: 3.52 MILLIGRAM, QD
     Route: 058
     Dates: start: 20170720
  6. TEDUGLUTIDE [Suspect]
     Active Substance: TEDUGLUTIDE
     Indication: SHORT-BOWEL SYNDROME
     Dosage: 3.52 MILLIGRAM, QD
     Route: 058
     Dates: start: 20170720
  7. TEDUGLUTIDE [Suspect]
     Active Substance: TEDUGLUTIDE
     Dosage: 5 MILLIGRAM, QD
     Route: 058
     Dates: start: 20170720
  8. TEDUGLUTIDE [Suspect]
     Active Substance: TEDUGLUTIDE
     Dosage: 5 MILLIGRAM, QD
     Route: 058
     Dates: start: 20170720

REACTIONS (6)
  - Diarrhoea [Unknown]
  - Weight decreased [Unknown]
  - Urinary tract infection [Unknown]
  - Product availability issue [Unknown]
  - Pneumonia [Unknown]
  - Sinusitis [Unknown]

NARRATIVE: CASE EVENT DATE: 20190701
